FAERS Safety Report 21717820 (Version 1)
Quarter: 2022Q4

REPORT INFORMATION
  Report Type: Spontaneous
  Country: US (occurrence: US)
  Receive Date: 20221212
  Receipt Date: 20221212
  Transmission Date: 20230113
  Serious: Yes (Hospitalization, Other)
  Sender: FDA-Public Use
  Company Number: US-ALLERGAN-2240758US

PATIENT
  Sex: Male
  Weight: 83.914 kg

DRUGS (1)
  1. LINZESS [Suspect]
     Active Substance: LINACLOTIDE
     Indication: Constipation
     Dosage: 1 DF, QD
     Dates: start: 2017

REACTIONS (2)
  - Thyroid cancer [Recovering/Resolving]
  - Iodine overload [Unknown]

NARRATIVE: CASE EVENT DATE: 20210701
